FAERS Safety Report 11678755 (Version 1)
Quarter: 2015Q4

REPORT INFORMATION
  Report Type: Spontaneous
  Country: US (occurrence: US)
  Receive Date: 20151028
  Receipt Date: 20151028
  Transmission Date: 20160304
  Serious: No
  Sender: FDA-Public Use
  Company Number: US-IMPAX LABORATORIES, INC-2015-IPXL-00986

PATIENT
  Sex: Female
  Weight: 52.61 kg

DRUGS (6)
  1. AMANTADINE [Concomitant]
     Active Substance: AMANTADINE
     Indication: PARKINSON^S DISEASE
     Dosage: UNK
     Route: 065
  2. LORAZEPAM. [Concomitant]
     Active Substance: LORAZEPAM
     Indication: ANXIETY
     Dosage: UNK
     Route: 065
  3. TRAMADOL. [Concomitant]
     Active Substance: TRAMADOL
     Indication: PAIN
     Dosage: UNK
     Route: 065
  4. EFFEXOR [Concomitant]
     Active Substance: VENLAFAXINE HYDROCHLORIDE
     Indication: DEPRESSION
     Dosage: UNK
     Route: 065
  5. RYTARY [Suspect]
     Active Substance: CARBIDOPA\LEVODOPA
     Indication: PARKINSON^S DISEASE
     Dosage: (48.75/195MG), THREE CAPSULES FIVE TIMES DAILY
     Route: 048
     Dates: start: 20150612
  6. ZANAFLEX [Concomitant]
     Active Substance: TIZANIDINE HYDROCHLORIDE
     Indication: BACK PAIN
     Dosage: UNK
     Route: 065

REACTIONS (1)
  - Pre-existing condition improved [Unknown]

NARRATIVE: CASE EVENT DATE: 2015
